FAERS Safety Report 4423015-6 (Version None)
Quarter: 2004Q3

REPORT INFORMATION
  Report Type: 
  Country: None (occurrence: None)
  Receive Date: 20040806
  Receipt Date: 20040727
  Transmission Date: 20050211
  Serious: Yes (Other)
  Sender: FDA-Public Use
  Company Number: FI-JNJFOC-20040702831

PATIENT
  Age: 58 Year
  Sex: Female

DRUGS (2)
  1. REMICADE [Suspect]
     Indication: RHEUMATOID ARTHRITIS
     Dosage: 200 MG, 1 IN 9 WEEK, INTRAVENOUS
     Route: 042
     Dates: start: 20020120, end: 20040507
  2. METHOTREXATE [Suspect]

REACTIONS (4)
  - CHORIORETINITIS [None]
  - EYE INFECTION TOXOPLASMAL [None]
  - HERPES SIMPLEX SEROLOGY POSITIVE [None]
  - RHEUMATOID FACTOR POSITIVE [None]
